FAERS Safety Report 8142033 (Version 3)
Quarter: 2014Q1

REPORT INFORMATION
  Report Type: Report from Study
  Country: DE (occurrence: DE)
  Receive Date: 20110919
  Receipt Date: 20140310
  Transmission Date: 20141002
  Serious: No
  Sender: FDA-Public Use
  Company Number: DE-UCBSA-009399

PATIENT
  Age: 42 Year
  Sex: Female
  Weight: 112 kg

DRUGS (1)
  1. CERTOLIZUMAB PEGOL [Suspect]
     Indication: RHEUMATOID ARTHRITIS
     Route: 058
     Dates: start: 20100115, end: 20100302

REACTIONS (1)
  - Hypoaesthesia [Recovered/Resolved]
